FAERS Safety Report 9995027 (Version 1)
Quarter: 2014Q1

REPORT INFORMATION
  Report Type: Spontaneous
  Country: US (occurrence: None)
  Receive Date: 20140307
  Receipt Date: 20140307
  Transmission Date: 20141002
  Serious: No
  Sender: FDA-Public Use
  Company Number: None

PATIENT
  Age: 79 Year
  Sex: Female
  Weight: 62.6 kg

DRUGS (8)
  1. RANITIDINE [Suspect]
     Indication: GASTROOESOPHAGEAL REFLUX DISEASE
     Route: 048
     Dates: start: 20140215, end: 20140217
  2. L-THYROXINE [Concomitant]
  3. TRAZODONE [Concomitant]
  4. GLUCOSAMINE [Concomitant]
  5. CHONDROITIN [Concomitant]
  6. MAGNESIUM [Concomitant]
  7. PEPPERMINT OIL [Concomitant]
  8. GENERIC SINUS + ALLERGY GENERIC FOR SUDAFED [Concomitant]

REACTIONS (2)
  - Abdominal rigidity [None]
  - Pain [None]
